FAERS Safety Report 23710380 (Version 1)
Quarter: 2024Q2

REPORT INFORMATION
  Report Type: Spontaneous
  Country: IT (occurrence: IT)
  Receive Date: 20240405
  Receipt Date: 20240405
  Transmission Date: 20240716
  Serious: Yes (Other)
  Sender: FDA-Public Use
  Company Number: None

PATIENT
  Age: 36 Year
  Sex: Female

DRUGS (2)
  1. CYCLOPHOSPHAMIDE [Suspect]
     Active Substance: CYCLOPHOSPHAMIDE
     Indication: Breast cancer
     Dosage: INIZIO TERAPIA 17/10/2023 - TERAPIA OGNI 21 GIORNI - I CICLO IN DATA 17/10/2023 IV CICLO IN DATA 19/
     Route: 042
     Dates: start: 20231017, end: 20231219
  2. EPIRUBICIN [Suspect]
     Active Substance: EPIRUBICIN
     Indication: Breast cancer
     Dosage: 140 MILLIGRAM
     Route: 042
     Dates: start: 20231017, end: 20231219

REACTIONS (8)
  - Diarrhoea [Recovered/Resolved]
  - Neutropenia [Recovering/Resolving]
  - Alanine aminotransferase increased [Not Recovered/Not Resolved]
  - Alopecia [Recovering/Resolving]
  - Mucosal inflammation [Recovering/Resolving]
  - Vomiting [Recovered/Resolved]
  - Nausea [Recovered/Resolved]
  - Leukopenia [Recovering/Resolving]

NARRATIVE: CASE EVENT DATE: 20231101
